FAERS Safety Report 4921310-5 (Version None)
Quarter: 2006Q1

REPORT INFORMATION
  Report Type: 
  Country: None (occurrence: None)
  Receive Date: 20060222
  Receipt Date: 20060222
  Transmission Date: 20060701
  Serious: No
  Sender: FDA-Public Use
  Company Number: None

PATIENT
  Age: 14 Year
  Sex: Male

DRUGS (1)
  1. CALCIUM CARBONATE (FORMULATION UNKOWN) ASSORTED BERRIES (CALCIUM CARBO [Suspect]
     Indication: ABDOMINAL PAIN UPPER
     Dosage: ORAL
     Route: 048
     Dates: start: 20051217, end: 20051201

REACTIONS (10)
  - DRUG HYPERSENSITIVITY [None]
  - FEELING ABNORMAL [None]
  - OEDEMA PERIPHERAL [None]
  - PHARYNGITIS STREPTOCOCCAL [None]
  - RASH [None]
  - SPEECH DISORDER [None]
  - SWELLING FACE [None]
  - SWOLLEN TONGUE [None]
  - URTICARIA [None]
  - VOMITING [None]
